FAERS Safety Report 8071603-0 (Version None)
Quarter: 2012Q1

REPORT INFORMATION
  Report Type: 
  Country: None (occurrence: None)
  Receive Date: 20120125
  Receipt Date: 20120123
  Transmission Date: 20120608
  Serious: Yes (Other)
  Sender: FDA-Public Use
  Company Number: US-PFIZER INC-2012018473

PATIENT
  Sex: Male
  Weight: 60.32 kg

DRUGS (3)
  1. ZOLOFT [Concomitant]
     Dosage: UNK
  2. LIPITOR [Suspect]
     Indication: CARDIAC OPERATION
     Dosage: 20 MG, ONCE A DAY
     Route: 048
  3. LIPITOR [Suspect]
     Dosage: 60 MG, ONCE A DAY
     Route: 048

REACTIONS (1)
  - CARDIOVASCULAR DISORDER [None]
